FAERS Safety Report 6663553-9 (Version None)
Quarter: 2010Q2

REPORT INFORMATION
  Report Type: 
  Country: None (occurrence: None)
  Receive Date: 20100401
  Receipt Date: 20100319
  Transmission Date: 20101027
  Serious: No
  Sender: FDA-Public Use
  Company Number: US-B.I. PHARMACEUTICALS,INC./RIDGEFIELD-2010-BP-02246BP

PATIENT
  Age: 61 Year
  Sex: Female

DRUGS (9)
  1. SPIRIVA [Suspect]
     Indication: CHRONIC OBSTRUCTIVE PULMONARY DISEASE
     Dosage: 18 MCG
     Route: 055
     Dates: start: 20070101
  2. COMBIVENT [Concomitant]
     Indication: ASTHMA
     Dosage: 8 PUF
     Route: 055
     Dates: start: 20000101
  3. PLAVIX [Concomitant]
     Route: 048
     Dates: start: 20090101
  4. NEXIUM [Concomitant]
  5. CELEXA [Concomitant]
  6. ALPRAZOLAM [Concomitant]
  7. CENTRUM SILVER FOR WOMEN [Concomitant]
  8. VITAMIN D [Concomitant]
  9. CALCIUM [Concomitant]

REACTIONS (2)
  - THROMBOSIS [None]
  - WEIGHT DECREASED [None]
